FAERS Safety Report 4352170-1 (Version None)
Quarter: 2004Q2

REPORT INFORMATION
  Report Type: 
  Country: None (occurrence: None)
  Receive Date: 20040428
  Receipt Date: 20040419
  Transmission Date: 20050107
  Serious: Yes (Hospitalization, Other)
  Sender: FDA-Public Use
  Company Number: 2004-04-1124

PATIENT
  Age: 8 Month
  Sex: Female

DRUGS (3)
  1. RINDERON ^LIKE CELESTONE SYRUP^ SYRUP [Suspect]
     Indication: HYPERSENSITIVITY
     Dosage: 7 ML QD ORAL
     Route: 048
     Dates: start: 20030703, end: 20030715
  2. PREDONINE [Suspect]
     Indication: HYPERSENSITIVITY
     Dosage: 13 MG QD INTRAVENOUS
     Route: 042
     Dates: start: 20030702, end: 20030702
  3. ZADITEN [Concomitant]

REACTIONS (4)
  - ALANINE AMINOTRANSFERASE INCREASED [None]
  - APOPTOSIS [None]
  - ASPARTATE AMINOTRANSFERASE INCREASED [None]
  - LIVER DISORDER [None]
